FAERS Safety Report 5934575-8 (Version None)
Quarter: 2008Q4

REPORT INFORMATION
  Report Type: 
  Country: None (occurrence: None)
  Receive Date: 20081027
  Receipt Date: 20081017
  Transmission Date: 20090506
  Serious: Yes (Hospitalization)
  Sender: FDA-Public Use
  Company Number: WAES 0810USA03282

PATIENT
  Age: 60 Year
  Sex: Male
  Weight: 84.8226 kg

DRUGS (5)
  1. CAP VORINOSTAT UNK [Suspect]
     Indication: OESOPHAGEAL CANCER METASTATIC
     Dosage: 300 MG, DAILY; PO
     Route: 048
     Dates: start: 20081001, end: 20081014
  2. IRINOTECAN HCL [Suspect]
     Dosage: Q2W, IV
     Route: 042
     Dates: start: 20081001, end: 20081001
  3. LEUCOVORIN CALCIUM [Suspect]
     Indication: OESOPHAGEAL CANCER METASTATIC
     Dosage: Q2W; IV
     Route: 042
     Dates: start: 20081001, end: 20081001
  4. FLUOROURACIL [Suspect]
     Indication: OESOPHAGEAL CANCER METASTATIC
     Dosage: IV
     Route: 042
     Dates: start: 20081001, end: 20081001
  5. FLUOROURACIL [Suspect]
     Indication: OESOPHAGEAL CANCER METASTATIC
     Dosage: IV
     Route: 042
     Dates: start: 20081001, end: 20081003

REACTIONS (7)
  - BLOOD ALBUMIN DECREASED [None]
  - BLOOD SODIUM ABNORMAL [None]
  - CHOKING [None]
  - HAEMOGLOBIN DECREASED [None]
  - LOBAR PNEUMONIA [None]
  - PLATELET COUNT DECREASED [None]
  - PLEURAL EFFUSION [None]
